FAERS Safety Report 17757313 (Version 1)
Quarter: 2020Q2

REPORT INFORMATION
  Report Type: Spontaneous
  Country: US (occurrence: US)
  Receive Date: 20200507
  Receipt Date: 20200507
  Transmission Date: 20200714
  Serious: No
  Sender: FDA-Public Use
  Company Number: US-AMNEAL PHARMACEUTICALS-2019AMN00421

PATIENT
  Sex: Female
  Weight: 54.42 kg

DRUGS (4)
  1. MULTIVITAMINS [Concomitant]
     Active Substance: VITAMINS
     Indication: PRODUCT USED FOR UNKNOWN INDICATION
     Dosage: UNK, 1X/DAY
  2. FISH OIL [Concomitant]
     Active Substance: FISH OIL
     Indication: PRODUCT USED FOR UNKNOWN INDICATION
     Dosage: UNK (EVERY OTHER DAY)
  3. ASPIRIN. [Concomitant]
     Active Substance: ASPIRIN
     Indication: ERYTHROMELALGIA
     Dosage: UNK UNK, 1X/DAY
  4. DICLOFENAC SODIUM. [Suspect]
     Active Substance: DICLOFENAC SODIUM
     Indication: PAIN IN EXTREMITY
     Dosage: 2 G, 2X/DAY
     Route: 061
     Dates: start: 20190318

REACTIONS (1)
  - Therapeutic product effect incomplete [Not Recovered/Not Resolved]
